FAERS Safety Report 9704606 (Version 1)
Quarter: 2013Q4

REPORT INFORMATION
  Report Type: Report from Study
  Country: US (occurrence: US)
  Receive Date: 20131122
  Receipt Date: 20131122
  Transmission Date: 20140711
  Serious: Yes (Other)
  Sender: FDA-Public Use
  Company Number: US-ROCHE-1303222

PATIENT
  Age: 7 Year
  Sex: Male
  Weight: 42.81 kg

DRUGS (2)
  1. NUTROPIN AQ [Suspect]
     Indication: PRADER-WILLI SYNDROME
     Route: 058
     Dates: start: 20070108
  2. ABILIFY [Concomitant]
     Dosage: 2 TABS IN AM AND 1 TAB HS
     Route: 048

REACTIONS (5)
  - Hypotonia [Unknown]
  - Aggression [Unknown]
  - Respiratory tract infection [Recovered/Resolved]
  - Body height abnormal [Unknown]
  - Weight increased [Unknown]
